FAERS Safety Report 8856598 (Version 1)
Quarter: 2012Q4

REPORT INFORMATION
  Report Type: Spontaneous
  Country: US (occurrence: None)
  Receive Date: 20121024
  Receipt Date: 20121024
  Transmission Date: 20130627
  Serious: Yes (Death)
  Sender: FDA-Public Use
  Company Number: None

PATIENT
  Sex: Female
  Weight: 119.75 kg

DRUGS (9)
  1. METHYLPREDNISOLONE ACETATE [Suspect]
     Indication: LOW BACK PAIN
     Route: 008
     Dates: start: 20120910
  2. OMNIPAQUE [Concomitant]
  3. LIDOCAINE [Concomitant]
  4. CHLORAPREP [Concomitant]
  5. SODIUM CHLORIDE [Concomitant]
  6. COUMADIN [Concomitant]
  7. PREDNISONE [Concomitant]
  8. METHOTREXATE [Concomitant]
  9. FLU VACCINE [Concomitant]

REACTIONS (1)
  - Cerebrovascular accident [None]
